FAERS Safety Report 4869673-3 (Version None)
Quarter: 2005Q4

REPORT INFORMATION
  Report Type: 
  Country: None (occurrence: None)
  Receive Date: 20051223
  Receipt Date: 20051220
  Transmission Date: 20060501
  Serious: Yes (Hospitalization, Other)
  Sender: FDA-Public Use
  Company Number: DEWYE207406DEC05

PATIENT
  Age: 48 Year
  Sex: Female

DRUGS (3)
  1. TREVILOR RETARD (VENLAFAXINE HYDROCHLORIDE, CAPSULES, EXTENDED RELEASE [Suspect]
     Dosage: ORAL
     Route: 048
     Dates: start: 20051205, end: 20051205
  2. TRUXAL (CHLORPROTHIXENE HYDROCHLORIDE,  ,  0) [Suspect]
     Dosage: 20 TABLETS (OVERDOSE AMOUNT 1000 MG), ORAL
     Route: 048
     Dates: start: 20051205, end: 20051205
  3. MORPHINE SULFATE [Suspect]
     Dates: start: 20051205, end: 20051205

REACTIONS (6)
  - ASPIRATION [None]
  - HYPOTENSION [None]
  - INTENTIONAL OVERDOSE [None]
  - SOPOR [None]
  - SUICIDE ATTEMPT [None]
  - TACHYCARDIA [None]
